FAERS Safety Report 4755628-6 (Version None)
Quarter: 2005Q3

REPORT INFORMATION
  Report Type: 
  Country: None (occurrence: None)
  Receive Date: 20050830
  Receipt Date: 20050517
  Transmission Date: 20060218
  Serious: No
  Sender: FDA-Public Use
  Company Number: US-BRISTOL-MYERS SQUIBB COMPANY-12996823

PATIENT
  Age: 13 Year
  Sex: Male

DRUGS (4)
  1. ABILIFY [Suspect]
     Indication: SCHIZOPHRENIA
     Dosage: JANUARY 2004 10MG, 20MG OCTOBER 2004, APRIL 2005 10MG
     Route: 048
     Dates: start: 20040101, end: 20050525
  2. ABILIFY [Suspect]
     Indication: PARANOIA
     Dosage: JANUARY 2004 10MG, 20MG OCTOBER 2004, APRIL 2005 10MG
     Route: 048
     Dates: start: 20040101, end: 20050525
  3. LUVOX [Concomitant]
     Indication: OBSESSIVE-COMPULSIVE DISORDER
  4. METHYLPHENIDATE HCL [Concomitant]
     Indication: ATTENTION DEFICIT/HYPERACTIVITY DISORDER

REACTIONS (1)
  - TONGUE DISORDER [None]
